FAERS Safety Report 7233140-2 (Version None)
Quarter: 2011Q1

REPORT INFORMATION
  Report Type: 
  Country: None (occurrence: None)
  Receive Date: 20110119
  Receipt Date: 20110117
  Transmission Date: 20110831
  Serious: Yes (Other)
  Sender: FDA-Public Use
  Company Number: CH-ROXANE LABORATORIES, INC.-2011-RO-00065RO

PATIENT
  Age: 57 Year
  Sex: Male

DRUGS (7)
  1. SIMVASTATIN [Suspect]
  2. MYCOPHENOLATE MOFETIL [Suspect]
     Indication: IMMUNOSUPPRESSION
  3. PREDNISONE [Suspect]
     Indication: IMMUNOSUPPRESSION
  4. AZATHIOPRINE [Suspect]
     Indication: IMMUNOSUPPRESSION
  5. CYCLOSPORINE [Suspect]
     Indication: IMMUNOSUPPRESSION
  6. TACROLIMUS [Suspect]
     Indication: IMMUNOSUPPRESSION
  7. ATORVASTATIN [Suspect]

REACTIONS (6)
  - SQUAMOUS CELL CARCINOMA OF SKIN [None]
  - RHABDOMYOLYSIS [None]
  - TRANSPLANT REJECTION [None]
  - ACTINIC KERATOSIS [None]
  - NOCARDIOSIS [None]
  - DISEASE PROGRESSION [None]
